FAERS Safety Report 19683429 (Version 1)
Quarter: 2021Q3

REPORT INFORMATION
  Report Type: Spontaneous
  Country: US (occurrence: US)
  Receive Date: 20210811
  Receipt Date: 20210811
  Transmission Date: 20211014
  Serious: No
  Sender: FDA-Public Use
  Company Number: US-ASTRAZENECA-2021A648887

PATIENT

DRUGS (6)
  1. BRILINTA [Suspect]
     Active Substance: TICAGRELOR
     Route: 048
  2. LISINOPRIL. [Suspect]
     Active Substance: LISINOPRIL
     Route: 048
  3. PANTOPRAZOLE SODIUM. [Concomitant]
     Active Substance: PANTOPRAZOLE SODIUM
  4. PANTOPRAZOLE SODIUM. [Concomitant]
     Active Substance: PANTOPRAZOLE SODIUM
  5. CELECOXIB. [Concomitant]
     Active Substance: CELECOXIB
  6. PRIMIDONE. [Concomitant]
     Active Substance: PRIMIDONE

REACTIONS (4)
  - Drug hypersensitivity [Unknown]
  - Rash [Unknown]
  - Chest pain [Unknown]
  - Dyspnoea [Unknown]
